FAERS Safety Report 4819207-4 (Version None)
Quarter: 2005Q4

REPORT INFORMATION
  Report Type: 
  Country: None (occurrence: None)
  Receive Date: 20051103
  Receipt Date: 20051024
  Transmission Date: 20060501
  Serious: Yes (Life-Threatening, Hospitalization)
  Sender: FDA-Public Use
  Company Number: FR-GLAXOSMITHKLINE-B0398065A

PATIENT
  Age: 72 Year
  Sex: Female

DRUGS (5)
  1. DEROXAT [Suspect]
     Indication: DRUG USE FOR UNKNOWN INDICATION
     Route: 048
     Dates: end: 20050910
  2. DIGOXINE NATIVELLE [Suspect]
     Route: 048
     Dates: end: 20050910
  3. LIPANTHYL [Suspect]
     Route: 048
     Dates: end: 20050910
  4. NOCTRAN 10 [Suspect]
     Route: 048
     Dates: end: 20050910
  5. LEXOMIL [Concomitant]
     Route: 048
     Dates: end: 20050910

REACTIONS (4)
  - COMA [None]
  - DISORIENTATION [None]
  - HYPONATRAEMIA [None]
  - LOSS OF CONSCIOUSNESS [None]
